FAERS Safety Report 8819776 (Version 2)
Quarter: 2015Q1

REPORT INFORMATION
  Report Type: Report from Study
  Country: US (occurrence: US)
  Receive Date: 20121001
  Receipt Date: 20150205
  Transmission Date: 20150721
  Serious: Yes (Death)
  Sender: FDA-Public Use
  Company Number: US-ROCHE-1129929

PATIENT
  Sex: Female
  Weight: 77.18 kg

DRUGS (9)
  1. MITOMYCIN. [Concomitant]
     Active Substance: MITOMYCIN
  2. HERCEPTIN [Suspect]
     Active Substance: TRASTUZUMAB
     Indication: BREAST CANCER METASTATIC
     Dosage: LOADING DOSE
     Route: 042
     Dates: start: 19981009
  3. TAXOL [Concomitant]
     Active Substance: PACLITAXEL
  4. VELBAN [Concomitant]
     Active Substance: VINBLASTINE SULFATE
  5. XELODA [Suspect]
     Active Substance: CAPECITABINE
     Indication: BREAST CANCER METASTATIC
     Route: 065
  6. HERCEPTIN [Suspect]
     Active Substance: TRASTUZUMAB
     Indication: METASTASES TO BONE
  7. HERCEPTIN [Suspect]
     Active Substance: TRASTUZUMAB
     Indication: METASTASES TO LIVER
  8. TAXOTERE [Concomitant]
     Active Substance: DOCETAXEL
  9. HERCEPTIN [Suspect]
     Active Substance: TRASTUZUMAB
     Indication: METASTASES TO PLEURA

REACTIONS (5)
  - Chills [Unknown]
  - Death [Fatal]
  - Pain [Unknown]
  - Feeling abnormal [Unknown]
  - Nausea [Unknown]
